FAERS Safety Report 13350111 (Version 1)
Quarter: 2017Q1

REPORT INFORMATION
  Report Type: Report from Study
  Country: US (occurrence: US)
  Receive Date: 20170320
  Receipt Date: 20170320
  Transmission Date: 20170429
  Serious: Yes (Other)
  Sender: FDA-Public Use
  Company Number: US-GILEAD-2016-0243207

PATIENT
  Age: 66 Year
  Sex: Female

DRUGS (3)
  1. AMBRISENTAN [Suspect]
     Active Substance: AMBRISENTAN
     Dosage: 5 MG, QD
     Route: 065
     Dates: start: 20160927
  2. AMBRISENTAN [Suspect]
     Active Substance: AMBRISENTAN
     Indication: PULMONARY HYPERTENSION
     Dosage: 10 MG, QD
     Route: 065
     Dates: start: 20160926
  3. OXYGEN. [Concomitant]
     Active Substance: OXYGEN

REACTIONS (11)
  - Hot flush [Unknown]
  - Fatigue [Unknown]
  - Cough [Unknown]
  - Headache [Unknown]
  - Swelling face [Unknown]
  - Feeling abnormal [Unknown]
  - Pyrexia [Unknown]
  - Ammonia increased [Not Recovered/Not Resolved]
  - Pneumonia [Recovered/Resolved]
  - Malaise [Unknown]
  - Unevaluable event [Unknown]

NARRATIVE: CASE EVENT DATE: 201701
